FAERS Safety Report 5056433-6 (Version None)
Quarter: 2006Q3

REPORT INFORMATION
  Report Type: 
  Country: None (occurrence: None)
  Receive Date: 20060717
  Receipt Date: 20060710
  Transmission Date: 20061208
  Serious: Yes (Other)
  Sender: FDA-Public Use
  Company Number: 14384

PATIENT
  Age: 58 Year
  Sex: Female

DRUGS (7)
  1. FLUOROURACIL [Suspect]
     Indication: COLON CANCER
  2. FLUOROURACIL [Suspect]
     Indication: METASTASES TO OVARY
  3. IRINOTECAN HCL [Suspect]
     Indication: COLON CANCER
  4. IRINOTECAN HCL [Suspect]
     Indication: METASTASES TO OVARY
  5. CALCIUM FOLINATE [Suspect]
     Indication: COLON CANCER
  6. CALCIUM FOLINATE [Suspect]
     Indication: METASTASES TO OVARY
  7. DIAMORPHINE [Concomitant]

REACTIONS (2)
  - CONFUSIONAL STATE [None]
  - INFECTION [None]
